FAERS Safety Report 9515560 (Version 2)
Quarter: 2014Q1

REPORT INFORMATION
  Report Type: Spontaneous
  Country: US (occurrence: None)
  Receive Date: 20130305
  Receipt Date: 20140306
  Transmission Date: 20141002
  Serious: Yes (Other)
  Sender: FDA-Public Use
  Company Number: 163-21880-12121542

PATIENT
  Age: 74 Year
  Sex: Male

DRUGS (1)
  1. REVLIMID (LENALIDOMIDE) (CAPSULES) [Suspect]
     Indication: MYELODYSPLASTIC SYNDROME
     Dosage: 2.5 MG, 28 IN 28 D, PO
     Route: 048
     Dates: start: 201209

REACTIONS (3)
  - Swelling [None]
  - Arthralgia [None]
  - Adverse drug reaction [None]
